FAERS Safety Report 18576834 (Version 1)
Quarter: 2020Q4

REPORT INFORMATION
  Report Type: Report from Study
  Country: US (occurrence: US)
  Receive Date: 20201203
  Receipt Date: 20201203
  Transmission Date: 20210114
  Serious: Yes (Other)
  Sender: FDA-Public Use
  Company Number: US-JNJFOC-A-NJ2020-208225

PATIENT
  Age: 73 Year
  Sex: Female
  Weight: 65.38 kg

DRUGS (3)
  1. UPTRAVI [Suspect]
     Active Substance: SELEXIPAG
     Indication: PULMONARY ARTERIAL HYPERTENSION
     Dosage: 200 MCG, BID
     Route: 048
     Dates: start: 20200727
  2. OPSUMIT [Concomitant]
     Active Substance: MACITENTAN
     Indication: PULMONARY ARTERIAL HYPERTENSION
     Dates: start: 20200103
  3. TADALAFIL. [Concomitant]
     Active Substance: TADALAFIL

REACTIONS (6)
  - Hypotension [Unknown]
  - Abdominal discomfort [Unknown]
  - Hepatic enzyme increased [Not Recovered/Not Resolved]
  - Lethargy [Unknown]
  - Diarrhoea [Not Recovered/Not Resolved]
  - Nausea [Not Recovered/Not Resolved]

NARRATIVE: CASE EVENT DATE: 20200727
